FAERS Safety Report 5541560-7 (Version None)
Quarter: 2007Q4

REPORT INFORMATION
  Report Type: 
  Country: None (occurrence: None)
  Receive Date: 20071210
  Receipt Date: 20071128
  Transmission Date: 20080405
  Serious: Yes (Hospitalization, Other)
  Sender: FDA-Public Use
  Company Number: PHHO2007VE09515

PATIENT
  Age: 77 Year
  Sex: Female

DRUGS (6)
  1. DIOVAN HCT [Suspect]
     Indication: HYPERTENSION
     Dosage: 160/12.5MG QD
     Route: 048
     Dates: start: 19930101
  2. DIOVAN HCT [Suspect]
     Dosage: 160/12.5MG BID
     Route: 048
  3. VOLTAREN (CATAFLAM) [Suspect]
  4. PANTOP [Concomitant]
  5. DOLAK [Concomitant]
  6. GLUCOPHAGE [Concomitant]

REACTIONS (4)
  - BLOOD PRESSURE FLUCTUATION [None]
  - GASTRITIS [None]
  - HYPERTENSIVE CRISIS [None]
  - STRESS [None]
